FAERS Safety Report 13266208 (Version 10)
Quarter: 2019Q4

REPORT INFORMATION
  Report Type: Spontaneous
  Country: US (occurrence: US)
  Receive Date: 20170223
  Receipt Date: 20191008
  Transmission Date: 20200122
  Serious: No
  Sender: FDA-Public Use
  Company Number: US-ACTELION-A-US2016-137491

PATIENT
  Age: 72 Year
  Sex: Female

DRUGS (10)
  1. SUMATRIPTAN. [Concomitant]
     Active Substance: SUMATRIPTAN
  2. AMLODIPINE [Concomitant]
     Active Substance: AMLODIPINE BESYLATE
  3. OPSUMIT [Suspect]
     Active Substance: MACITENTAN
     Indication: PULMONARY ARTERIAL HYPERTENSION
     Dosage: 10 MG, QD
     Route: 048
     Dates: start: 20160420
  4. LEVOTHYROXINE. [Concomitant]
     Active Substance: LEVOTHYROXINE
  5. TADALAFIL. [Suspect]
     Active Substance: TADALAFIL
     Indication: PRODUCT USED FOR UNKNOWN INDICATION
     Route: 065
  6. CALCIUM [Concomitant]
     Active Substance: CALCIUM
  7. GLUCOSAMINE [Concomitant]
     Active Substance: GLUCOSAMINE
  8. ZYRTEC [Concomitant]
     Active Substance: CETIRIZINE HYDROCHLORIDE
  9. ESTRADIOL. [Concomitant]
     Active Substance: ESTRADIOL
  10. LISINOPRIL. [Concomitant]
     Active Substance: LISINOPRIL
     Dosage: UNK

REACTIONS (14)
  - Anaemia [Not Recovered/Not Resolved]
  - Skin laceration [Not Recovered/Not Resolved]
  - Dizziness postural [Not Recovered/Not Resolved]
  - Pharyngitis [Recovered/Resolved]
  - Cervical radiculopathy [Not Recovered/Not Resolved]
  - Temporomandibular joint syndrome [Not Recovered/Not Resolved]
  - Angular cheilitis [Not Recovered/Not Resolved]
  - Candida infection [Not Recovered/Not Resolved]
  - Rosacea [Not Recovered/Not Resolved]
  - Otitis media acute [Recovered/Resolved]
  - Epistaxis [Not Recovered/Not Resolved]
  - Adverse event [Unknown]
  - Arthralgia [Recovered/Resolved]
  - Urinary tract infection [Unknown]

NARRATIVE: CASE EVENT DATE: 201604
